FAERS Safety Report 23925663 (Version 1)
Quarter: 2024Q2

REPORT INFORMATION
  Report Type: Spontaneous
  Country: US (occurrence: None)
  Receive Date: 20240531
  Receipt Date: 20240531
  Transmission Date: 20240715
  Serious: Yes (Hospitalization)
  Sender: FDA-Public Use
  Company Number: None

PATIENT
  Sex: Female
  Weight: 77.11 kg

DRUGS (3)
  1. FLUOROURACIL [Suspect]
     Active Substance: FLUOROURACIL
  2. IRINOTECAN LIPOSOME (MM-398, ONVYDE) [Concomitant]
  3. LEUCOVORIN CALCIUM [Concomitant]
     Active Substance: LEUCOVORIN CALCIUM

REACTIONS (11)
  - Dyspnoea [None]
  - Asthenia [None]
  - Oedema peripheral [None]
  - Diarrhoea [None]
  - Fatigue [None]
  - Urinary retention [None]
  - Abdominal distension [None]
  - Dyspnoea [None]
  - Blood pressure decreased [None]
  - Heart rate increased [None]
  - Blood lactic acid increased [None]

NARRATIVE: CASE EVENT DATE: 20230827
